FAERS Safety Report 8934906 (Version 1)
Quarter: 2012Q4

REPORT INFORMATION
  Report Type: 
  Country: IE (occurrence: IE)
  Receive Date: 20121129
  Receipt Date: 20121129
  Transmission Date: 20130627
  Serious: Yes (Other)
  Sender: FDA-Public Use
  Company Number: IE-009507513-1211IRL009864

PATIENT
  Age: 33 Year
  Sex: Male

DRUGS (1)
  1. PROPECIA 1MG FILM-COATED TABLET [Suspect]
     Indication: ALOPECIA
     Dosage: UNK
     Route: 048
     Dates: start: 2008, end: 2009

REACTIONS (4)
  - Suicidal ideation [Unknown]
  - Abnormal behaviour [Unknown]
  - Erectile dysfunction [Not Recovered/Not Resolved]
  - Abnormal behaviour [Unknown]
